FAERS Safety Report 14480283 (Version 2)
Quarter: 2018Q1

REPORT INFORMATION
  Report Type: Spontaneous
  Country: US (occurrence: US)
  Receive Date: 20180202
  Receipt Date: 20180219
  Transmission Date: 20180509
  Serious: No
  Sender: FDA-Public Use
  Company Number: US-ELI_LILLY_AND_COMPANY-US201801013704

PATIENT
  Sex: Male
  Weight: 92.97 kg

DRUGS (3)
  1. REMODULIN [Suspect]
     Active Substance: TREPROSTINIL
     Dosage: 26NG/KG/MIN, CONT
     Route: 042
     Dates: start: 20180122
  2. ADCIRCA [Suspect]
     Active Substance: TADALAFIL
     Indication: PRODUCT USED FOR UNKNOWN INDICATION
     Dosage: UNK UNK, UNKNOWN
     Route: 065
  3. REMODULIN [Suspect]
     Active Substance: TREPROSTINIL
     Indication: PULMONARY ARTERIAL HYPERTENSION
     Dosage: 21 NG, OTHER
     Route: 042
     Dates: start: 20180122

REACTIONS (6)
  - Therapy non-responder [Unknown]
  - Pain in extremity [Unknown]
  - Diabetic neuropathy [Recovering/Resolving]
  - Pain in jaw [Unknown]
  - Paraesthesia [Unknown]
  - Penis disorder [Unknown]
